FAERS Safety Report 26149770 (Version 1)
Quarter: 2025Q4

REPORT INFORMATION
  Report Type: Spontaneous
  Country: US (occurrence: US)
  Receive Date: 20251212
  Receipt Date: 20251212
  Transmission Date: 20260118
  Serious: Yes (Life-Threatening, Hospitalization)
  Sender: BAYER HEALTHCARE LLC
  Company Number: US-MLMSERVICE-20251201-PI731973-00203-1

PATIENT
  Age: 62 Year
  Sex: Male
  Weight: 112.5 kg

DRUGS (6)
  1. NAPROXEN SODIUM [Interacting]
     Active Substance: NAPROXEN SODIUM
     Indication: Arthralgia
     Dosage: 500 MG; 12  H
  2. NAPROXEN SODIUM [Interacting]
     Active Substance: NAPROXEN SODIUM
     Indication: Arthralgia
     Dosage: INCREASED NAPROXEN TO THREE TIMES DAILY
  3. KETOROLAC [Interacting]
     Active Substance: KETOROLAC TROMETHAMINE
     Indication: Back pain
     Route: 042
  4. LISINOPRIL [Interacting]
     Active Substance: LISINOPRIL
     Dosage: FOR 10 MONTHS, HE HAD BEEN TAKING LISINOPRIL 10 MG THREE TIMES DAILY
  5. HYDROCHLOROTHIAZIDE [Interacting]
     Active Substance: HYDROCHLOROTHIAZIDE
     Dosage: FOR 10 MONTHS, PATIENT HAD BEEN TAKING HYDROCHLOROTHIAZIDE
  6. TRAMADOL [Concomitant]
     Active Substance: TRAMADOL
     Dosage: FOR 10 MONTHS, PATIENT HAD BEEN TAKING TRAMADOL

REACTIONS (2)
  - Acute kidney injury [Recovered/Resolved]
  - Potentiating drug interaction [Recovered/Resolved]
